FAERS Safety Report 10264513 (Version 3)
Quarter: 2016Q1

REPORT INFORMATION
  Report Type: Report from Study
  Country: US (occurrence: None)
  Receive Date: 20140624
  Receipt Date: 20160205
  Transmission Date: 20160525
  Serious: Yes (Life-Threatening, Hospitalization, Other)
  Sender: FDA-Public Use
  Company Number: ADR-2014-01081

PATIENT
  Age: 79 Year
  Sex: Male

DRUGS (2)
  1. FENTANYL INTRATHECAL 2500MCG/ML [Suspect]
     Active Substance: FENTANYL
     Indication: PAIN
     Dosage: 749.2MCG/DAY
  2. BACLOFEN INTRATHECAL 135MCG/ML [Suspect]
     Active Substance: BACLOFEN
     Indication: PAIN
     Dosage: 40.46MCG/DAY

REACTIONS (3)
  - Loss of consciousness [None]
  - Incorrect route of drug administration [None]
  - Arterial injury [None]
